FAERS Safety Report 16225518 (Version 1)
Quarter: 2019Q2

REPORT INFORMATION
  Report Type: Spontaneous
  Country: DE (occurrence: DE)
  Receive Date: 20190422
  Receipt Date: 20190422
  Transmission Date: 20190711
  Serious: Yes (Other)
  Sender: FDA-Public Use
  Company Number: DE-ALLERGAN-1917029US

PATIENT
  Sex: Female

DRUGS (7)
  1. PUREGON (FOLLITROPIN) [Suspect]
     Active Substance: FOLLITROPIN
     Indication: ASSISTED REPRODUCTIVE TECHNOLOGY
     Dosage: 75 (UNITS NOT REPORTED)
     Route: 065
  2. PROGESTERON [Concomitant]
     Active Substance: PROGESTERONE
     Indication: OVULATION INDUCTION
     Dosage: 200 MG, QD
     Route: 067
  3. HUMAN MENOPAUSAL GONADOTROPHIN [Suspect]
     Active Substance: GONADOTROPHIN, CHORIONIC
     Indication: ASSISTED REPRODUCTIVE TECHNOLOGY
     Dosage: 75 IU
     Route: 065
  4. TRIPTORELIN PAMOATE - BP [Suspect]
     Active Substance: TRIPTORELIN PAMOATE
     Indication: ASSISTED REPRODUCTIVE TECHNOLOGY
     Dosage: 0.1 (UNITS NOT REPORTED)
     Route: 065
  5. PUREGON (FOLLITROPIN) [Suspect]
     Active Substance: FOLLITROPIN
     Dosage: 100  (UNITS NOT REPORTED)
     Route: 065
  6. CHRONIC GONADOTROPHIN [Concomitant]
     Indication: OVULATION INDUCTION
     Dosage: 5000 IU, SINGLE
     Route: 065
     Dates: start: 20190328
  7. CHRONIC GONADOTROPHIN [Concomitant]
     Dosage: 10000 IU, SINGLE
     Route: 065
     Dates: start: 20190320

REACTIONS (1)
  - Ovarian hyperstimulation syndrome [Recovered/Resolved]

NARRATIVE: CASE EVENT DATE: 20190329
